FAERS Safety Report 8552061-6 (Version None)
Quarter: 2012Q3

REPORT INFORMATION
  Report Type: 
  Country: None (occurrence: None)
  Receive Date: 20120731
  Receipt Date: 20120717
  Transmission Date: 20120928
  Serious: Yes (Life-Threatening, Other)
  Sender: FDA-Public Use
  Company Number: FR-RANBAXY-2012RR-57679

PATIENT
  Sex: Female
  Weight: 45 kg

DRUGS (3)
  1. PROZAC [Concomitant]
     Indication: MAJOR DEPRESSION
     Dosage: PROGRESSIVE DOSE INCREASE REACHING 20 MG, DAILY
     Route: 065
     Dates: start: 20120101
  2. PROZAC [Concomitant]
     Dosage: UNK
     Route: 065
     Dates: start: 20120427
  3. FLUOXETINE [Suspect]
     Indication: MAJOR DEPRESSION
     Dosage: 20 MG/DAY
     Route: 048
     Dates: start: 20120423, end: 20120426

REACTIONS (10)
  - SUICIDAL IDEATION [None]
  - WITHDRAWAL SYNDROME [None]
  - MYALGIA [None]
  - PYREXIA [None]
  - ABDOMINAL PAIN [None]
  - HEADACHE [None]
  - PRODUCT QUALITY ISSUE [None]
  - HYPERHIDROSIS [None]
  - ANXIETY [None]
  - PRODUCT SUBSTITUTION ISSUE [None]
